FAERS Safety Report 5737370-8 (Version None)
Quarter: 2008Q2

REPORT INFORMATION
  Report Type: 
  Country: None (occurrence: None)
  Receive Date: 20080514
  Receipt Date: 20080505
  Transmission Date: 20081010
  Serious: Yes (Death)
  Sender: FDA-Public Use
  Company Number: SE-WYE-G01516408

PATIENT
  Age: 56 Year
  Sex: Male

DRUGS (2)
  1. RAPAMUNE [Suspect]
     Indication: RENAL TRANSPLANT
     Dates: start: 20060513, end: 20070509
  2. MYCOPHENOLATE MOFETIL [Concomitant]

REACTIONS (1)
  - SUDDEN DEATH [None]
